FAERS Safety Report 23977424 (Version 2)
Quarter: 2024Q2

REPORT INFORMATION
  Report Type: Report from Study
  Country: US (occurrence: US)
  Receive Date: 20240614
  Receipt Date: 20240620
  Transmission Date: 20240715
  Serious: Yes (Hospitalization)
  Sender: FDA-Public Use
  Company Number: US-BIOGEN-2024BI01258329

PATIENT
  Sex: Male

DRUGS (1)
  1. TYSABRI [Suspect]
     Active Substance: NATALIZUMAB
     Indication: Multiple sclerosis
     Route: 050
     Dates: start: 20130405

REACTIONS (4)
  - Decubitus ulcer [Not Recovered/Not Resolved]
  - Impaired healing [Not Recovered/Not Resolved]
  - Wound [Unknown]
  - Osteomyelitis [Unknown]
